FAERS Safety Report 24048389 (Version 1)
Quarter: 2024Q3

REPORT INFORMATION
  Report Type: Spontaneous
  Country: US (occurrence: US)
  Receive Date: 20240704
  Receipt Date: 20240704
  Transmission Date: 20241017
  Serious: Yes (Hospitalization)
  Sender: NOVO NORDISK
  Company Number: US-NOVOPROD-1246429

PATIENT
  Age: 67 Year
  Sex: Female

DRUGS (1)
  1. OZEMPIC [Suspect]
     Active Substance: SEMAGLUTIDE
     Indication: Product used for unknown indication
     Dosage: 1 MG
     Route: 058
     Dates: start: 202403, end: 202406

REACTIONS (3)
  - Colitis ischaemic [Recovered/Resolved]
  - Escherichia infection [Recovered/Resolved]
  - Klebsiella infection [Recovered/Resolved]
